FAERS Safety Report 14664225 (Version 3)
Quarter: 2018Q2

REPORT INFORMATION
  Report Type: Report from Study
  Country: CA (occurrence: CA)
  Receive Date: 20180321
  Receipt Date: 20180416
  Transmission Date: 20180711
  Serious: Yes (Hospitalization, Other)
  Sender: FDA-Public Use
  Company Number: PHHY2014CA027208

PATIENT
  Age: 79 Year
  Sex: Female

DRUGS (4)
  1. RAMIPRIL. [Suspect]
     Active Substance: RAMIPRIL
     Indication: PRODUCT USED FOR UNKNOWN INDICATION
     Route: 065
  2. SANDOSTATIN LAR DEPOT [Suspect]
     Active Substance: OCTREOTIDE ACETATE
     Indication: ACROMEGALY
     Dosage: 20 MG, QMO
     Route: 030
     Dates: start: 201312
  3. LAMOTRIGINE. [Concomitant]
     Active Substance: LAMOTRIGINE
     Indication: PRODUCT USED FOR UNKNOWN INDICATION
     Dosage: 175 MG, QD (75 MG, EVERY AM AND 100 MG EVERY PM)
     Route: 065
  4. SANDOSTATIN LAR DEPOT [Suspect]
     Active Substance: OCTREOTIDE ACETATE
     Dosage: 20 MG, QMO
     Route: 030
     Dates: start: 20140129

REACTIONS (10)
  - Body temperature decreased [Unknown]
  - Fall [Unknown]
  - Pain [Not Recovered/Not Resolved]
  - Blood pressure diastolic increased [Unknown]
  - Dementia [Unknown]
  - Nausea [Recovered/Resolved]
  - Blood pressure systolic increased [Unknown]
  - Blood pressure increased [Unknown]
  - Compression fracture [Unknown]
  - Contusion [Unknown]

NARRATIVE: CASE EVENT DATE: 20140129
